FAERS Safety Report 13235920 (Version 2)
Quarter: 2019Q2

REPORT INFORMATION
  Report Type: Other
  Country: US (occurrence: US)
  Receive Date: 20170215
  Receipt Date: 20190619
  Transmission Date: 20190711
  Serious: Yes (Hospitalization, Other)
  Sender: FDA-Public Use
  Company Number: US-AMAG PHARMACEUTICALS, INC.-AMAG201601982

PATIENT
  Age: 25 Year
  Sex: Female
  Weight: 73 kg

DRUGS (4)
  1. PRENATAL VITAMINS [Concomitant]
     Active Substance: VITAMINS
     Indication: PREGNANCY
     Dosage: 1 UNITS, QD
     Route: 065
     Dates: start: 20160217
  2. MAKENA [Suspect]
     Active Substance: HYDROXYPROGESTERONE CAPROATE
     Indication: PREMATURE DELIVERY
     Dosage: 250 MG/ML, WEEKLY
     Route: 030
     Dates: start: 20160415, end: 20160826
  3. CRINONE [Concomitant]
     Active Substance: PROGESTERONE
     Indication: ABORTION SPONTANEOUS
     Dosage: UNK
     Route: 065
     Dates: start: 20160129, end: 20160324
  4. BACTRIM [Concomitant]
     Active Substance: SULFAMETHOXAZOLE\TRIMETHOPRIM
     Indication: INGROWN HAIR
     Dosage: UNK
     Route: 065
     Dates: start: 20160122, end: 20160729

REACTIONS (9)
  - Constipation [Unknown]
  - Induced labour [Recovered/Resolved]
  - Urinary tract infection [Unknown]
  - Muscle spasms [Unknown]
  - Uterine contractions during pregnancy [Recovered/Resolved]
  - Nausea [Unknown]
  - Blood pressure increased [Unknown]
  - Dyspepsia [Unknown]
  - Headache [Unknown]

NARRATIVE: CASE EVENT DATE: 2016
